FAERS Safety Report 12773351 (Version 2)
Quarter: 2016Q4

REPORT INFORMATION
  Report Type: Spontaneous
  Country: US (occurrence: US)
  Receive Date: 20160922
  Receipt Date: 20161213
  Transmission Date: 20170207
  Serious: Yes (Death, Other)
  Sender: FDA-Public Use
  Company Number: US-MYLANLABS-2016M1040360

PATIENT

DRUGS (9)
  1. CLOZAPINE. [Suspect]
     Active Substance: CLOZAPINE
     Indication: SOMATIC DELUSION
  2. CITALOPRAM [Suspect]
     Active Substance: CITALOPRAM HYDROBROMIDE
     Indication: SOMATIC DELUSION
  3. CITALOPRAM [Suspect]
     Active Substance: CITALOPRAM HYDROBROMIDE
     Indication: SUICIDAL IDEATION
     Dosage: 40 MG, QD
  4. MODAFINIL. [Suspect]
     Active Substance: MODAFINIL
     Indication: PSYCHOTIC DISORDER
  5. CLOZAPINE. [Suspect]
     Active Substance: CLOZAPINE
     Indication: SUICIDAL IDEATION
     Dosage: 300 MG, QHS
  6. CLOZAPINE. [Suspect]
     Active Substance: CLOZAPINE
     Indication: PSYCHOTIC DISORDER
  7. MODAFINIL. [Suspect]
     Active Substance: MODAFINIL
     Indication: SUICIDAL IDEATION
     Dosage: 200 MG, QD
  8. MODAFINIL. [Suspect]
     Active Substance: MODAFINIL
     Indication: SOMATIC DELUSION
  9. CITALOPRAM [Suspect]
     Active Substance: CITALOPRAM HYDROBROMIDE
     Indication: PSYCHOTIC DISORDER

REACTIONS (5)
  - Therapy non-responder [Unknown]
  - Rebound effect [Fatal]
  - Sedation [Unknown]
  - Psychotic disorder [Fatal]
  - Completed suicide [Fatal]
